FAERS Safety Report 17128547 (Version 1)
Quarter: 2019Q4

REPORT INFORMATION
  Report Type: Spontaneous
  Country: US (occurrence: US)
  Receive Date: 20191206
  Receipt Date: 20191206
  Transmission Date: 20200122
  Serious: No
  Sender: FDA-Public Use
  Company Number: None

PATIENT
  Age: 35 Year
  Sex: Male
  Weight: 78.75 kg

DRUGS (1)
  1. METHYLPHENIDATE HYDROCHLORIDE TABLETS [Suspect]
     Active Substance: METHYLPHENIDATE HYDROCHLORIDE
     Indication: ATTENTION DEFICIT/HYPERACTIVITY DISORDER
     Dosage: ?          QUANTITY:30 TABLET(S);?
     Route: 048

REACTIONS (6)
  - Therapeutic product effect decreased [None]
  - Somnolence [None]
  - Drug effect faster than expected [None]
  - Therapeutic response changed [None]
  - Disturbance in attention [None]
  - Product complaint [None]

NARRATIVE: CASE EVENT DATE: 20191113
